FAERS Safety Report 5656989-6 (Version None)
Quarter: 2008Q1

REPORT INFORMATION
  Report Type: 
  Country: None (occurrence: None)
  Receive Date: 20080310
  Receipt Date: 20080229
  Transmission Date: 20080703
  Serious: Yes (Hospitalization)
  Sender: FDA-Public Use
  Company Number: B0511304A

PATIENT
  Age: 50 Year
  Sex: Male

DRUGS (6)
  1. FORTUM [Suspect]
     Indication: BRAIN ABSCESS
     Route: 042
     Dates: start: 20071022, end: 20071201
  2. FLAGYL [Suspect]
     Indication: BRAIN ABSCESS
     Dosage: 500MG THREE TIMES PER DAY
     Route: 042
     Dates: start: 20071012, end: 20071201
  3. DAFALGAN [Concomitant]
     Indication: DRUG USE FOR UNKNOWN INDICATION
     Route: 048
  4. GARDENAL [Concomitant]
     Indication: DRUG USE FOR UNKNOWN INDICATION
     Route: 048
  5. ALUMINUM HYDROXIDE AND MAGNESIUM TRISILICATE [Concomitant]
     Indication: DRUG USE FOR UNKNOWN INDICATION
     Route: 065
  6. DIFFU K [Concomitant]
     Indication: DRUG USE FOR UNKNOWN INDICATION
     Route: 065

REACTIONS (5)
  - BALANCE DISORDER [None]
  - CEREBELLAR ATAXIA [None]
  - GAIT DISTURBANCE [None]
  - PARESIS [None]
  - SPEECH DISORDER [None]
